FAERS Safety Report 19812481 (Version 1)
Quarter: 2021Q3

REPORT INFORMATION
  Report Type: Spontaneous
  Country: US (occurrence: US)
  Receive Date: 20210906
  Receipt Date: 20210906
  Transmission Date: 20211014
  Serious: Yes (Hospitalization)
  Sender: FDA-Public Use
  Company Number: None

PATIENT
  Age: 36 Year
  Sex: Female

DRUGS (1)
  1. HUMIRA [Suspect]
     Active Substance: ADALIMUMAB
     Dosage: OTHER? M06.09 TO PRESENT
     Route: 058

REACTIONS (5)
  - Aphasia [None]
  - Nausea [None]
  - Dysarthria [None]
  - Muscular weakness [None]
  - Somatic symptom disorder [None]

NARRATIVE: CASE EVENT DATE: 20210903
